FAERS Safety Report 23647917 (Version 2)
Quarter: 2025Q1

REPORT INFORMATION
  Report Type: Spontaneous
  Country: US (occurrence: US)
  Receive Date: 20240319
  Receipt Date: 20250205
  Transmission Date: 20250409
  Serious: Yes (Hospitalization)
  Sender: SANOFI AVENTIS
  Company Number: US-SA-SAC20240221000910

PATIENT
  Age: 32 Year
  Sex: Male
  Weight: 81.6 kg

DRUGS (1)
  1. DUPIXENT [Suspect]
     Active Substance: DUPILUMAB
     Indication: Dermatitis atopic
     Dosage: 300 MG, QOW
     Route: 058
     Dates: start: 201904

REACTIONS (3)
  - Hospitalisation [Unknown]
  - Palpitations [Unknown]
  - Appendicectomy [Unknown]
